FAERS Safety Report 9098843 (Version 1)
Quarter: 2013Q1

REPORT INFORMATION
  Report Type: Spontaneous
  Country: GB (occurrence: GB)
  Receive Date: 20130214
  Receipt Date: 20130214
  Transmission Date: 20140127
  Serious: Yes (Life-Threatening, Hospitalization, Other)
  Sender: FDA-Public Use
  Company Number: PHHY2013GB014135

PATIENT
  Age: 60 Year
  Sex: Female
  Weight: 47 kg

DRUGS (3)
  1. INDAPAMIDE [Suspect]
     Indication: HYPERTENSION
     Dosage: 2.5 MG, QD
     Route: 048
     Dates: start: 20120822, end: 20120905
  2. BISOPROLOL [Concomitant]
     Dosage: 2.5 MG, UNK
  3. RAMIPRIL [Concomitant]
     Dosage: 10 MG, UNK

REACTIONS (4)
  - Hyponatraemia [Recovered/Resolved]
  - Blood sodium decreased [Unknown]
  - Confusional state [Unknown]
  - Fall [Unknown]
